FAERS Safety Report 5275489-9 (Version None)
Quarter: 2007Q1

REPORT INFORMATION
  Report Type: 
  Country: None (occurrence: None)
  Receive Date: 20061213
  Receipt Date: 20040427
  Transmission Date: 20070707
  Serious: No
  Sender: FDA-Public Use
  Company Number: 2004UW08554

PATIENT
  Age: 54 Year
  Sex: Female
  Weight: 95.2554 kg

DRUGS (3)
  1. SEROQUEL [Suspect]
     Indication: BIPOLAR DISORDER
     Dosage: UR TABLETS PER DAY
     Dates: start: 20010101
  2. NEURONTIN [Concomitant]
  3. AMBIEN [Concomitant]

REACTIONS (6)
  - CHILLS [None]
  - HEADACHE [None]
  - HYPERHIDROSIS [None]
  - MUSCLE TWITCHING [None]
  - PERIPHERAL COLDNESS [None]
  - TARDIVE DYSKINESIA [None]
